FAERS Safety Report 17487067 (Version 1)
Quarter: 2020Q1

REPORT INFORMATION
  Report Type: Spontaneous
  Country: FR (occurrence: FR)
  Receive Date: 20200303
  Receipt Date: 20200303
  Transmission Date: 20200409
  Serious: Yes (Hospitalization)
  Sender: FDA-Public Use
  Company Number: FR-BAUSCH-BL-2020-006002

PATIENT
  Age: 55 Year
  Sex: Male

DRUGS (4)
  1. COLCHICINE OPOCALCIUM [Suspect]
     Active Substance: COLCHICINE
     Indication: GOUT
     Dosage: COMPRESSED
     Route: 048
     Dates: start: 20200124, end: 20200126
  2. CEFOTAXIME SODIQUE [Suspect]
     Active Substance: CEFOTAXIME SODIUM
     Indication: INFECTION
     Route: 042
     Dates: start: 20200113
  3. FOSFOMYCINE [Suspect]
     Active Substance: FOSFOMYCIN
     Indication: INFECTION
     Route: 042
     Dates: start: 20200113
  4. DEXAMETHASONE. [Suspect]
     Active Substance: DEXAMETHASONE
     Indication: INFECTION
     Route: 042
     Dates: start: 20200113, end: 20200117

REACTIONS (1)
  - Acute kidney injury [Recovered/Resolved]

NARRATIVE: CASE EVENT DATE: 20200125
